FAERS Safety Report 4974212-2 (Version None)
Quarter: 2006Q2

REPORT INFORMATION
  Report Type: 
  Country: None (occurrence: None)
  Receive Date: 20060417
  Receipt Date: 20051109
  Transmission Date: 20061013
  Serious: Yes (Hospitalization, Disabling)
  Sender: FDA-Public Use
  Company Number: US-MERCK-0511USA01576

PATIENT
  Age: 61 Year
  Sex: Female
  Weight: 66 kg

DRUGS (27)
  1. VIOXX [Suspect]
     Indication: ARTHRITIS
     Route: 048
     Dates: start: 19990825, end: 20040930
  2. VIOXX [Suspect]
     Route: 048
     Dates: start: 19990825, end: 20040930
  3. VIOXX [Suspect]
     Indication: SPINAL COLUMN STENOSIS
     Route: 048
     Dates: start: 19990825, end: 20040930
  4. VIOXX [Suspect]
     Route: 048
     Dates: start: 19990825, end: 20040930
  5. ISOSORBIDE [Concomitant]
     Route: 065
  6. CARISOPRODOL [Concomitant]
     Route: 065
  7. OXYCONTIN [Concomitant]
     Route: 065
  8. OXYCODONE [Concomitant]
     Route: 065
  9. ULTRAM [Concomitant]
     Route: 065
  10. SKELAXIN [Concomitant]
     Route: 065
  11. TYLENOL (CAPLET) [Concomitant]
     Route: 065
  12. ULTRACET [Concomitant]
     Route: 065
  13. NEURONTIN [Concomitant]
     Route: 065
  14. VASOTEC [Concomitant]
     Indication: HYPERTENSION
     Route: 065
  15. ZESTRIL [Concomitant]
     Route: 065
     Dates: start: 19970101
  16. ADALAT [Concomitant]
     Route: 065
     Dates: start: 19970101, end: 20040301
  17. INDOCIN [Concomitant]
     Indication: PAIN
     Route: 065
  18. ADVIL [Concomitant]
     Indication: PAIN
     Route: 065
  19. CYCLOBENZAPRINE HYDROCHLORIDE [Concomitant]
     Indication: PAIN
     Route: 065
  20. RELAFEN [Concomitant]
     Indication: PAIN
     Route: 065
  21. MOTRIN [Concomitant]
     Indication: PAIN
     Route: 065
  22. LOPRESSOR [Concomitant]
     Route: 065
  23. NAPROXEN [Concomitant]
     Route: 065
  24. ZANAFLEX [Concomitant]
     Route: 065
     Dates: start: 19980101
  25. TYLENOL W/ CODEINE NO. 3 [Concomitant]
     Route: 065
  26. ARTHROTEC [Concomitant]
     Route: 065
     Dates: start: 19960101
  27. [THERAPY UNSPECIFIED] [Concomitant]
     Route: 065

REACTIONS (21)
  - ACUTE MYOCARDIAL INFARCTION [None]
  - ANXIETY [None]
  - ARTERIOSCLEROSIS CORONARY ARTERY [None]
  - ARTHROPATHY [None]
  - ASTHMA [None]
  - BACK DISORDER [None]
  - BLOOD CHOLESTEROL INCREASED [None]
  - BONE FRAGMENTATION [None]
  - CARDIAC FAILURE CONGESTIVE [None]
  - CHRONIC OBSTRUCTIVE PULMONARY DISEASE [None]
  - DEPRESSION [None]
  - DYSLIPIDAEMIA [None]
  - DYSPEPSIA [None]
  - DYSPNOEA [None]
  - DYSPNOEA EXERTIONAL [None]
  - ELECTROCARDIOGRAM ST-T CHANGE [None]
  - EXOSTOSIS [None]
  - FATIGUE [None]
  - RESTLESS LEGS SYNDROME [None]
  - SPINAL COLUMN STENOSIS [None]
  - SPINAL DISORDER [None]
